FAERS Safety Report 5772970-0 (Version None)
Quarter: 2008Q2

REPORT INFORMATION
  Report Type: 
  Country: None (occurrence: None)
  Receive Date: 20080613
  Receipt Date: 20080603
  Transmission Date: 20081010
  Serious: Yes (Hospitalization, Other)
  Sender: FDA-Public Use
  Company Number: AU-PFIZER INC-2008047583

PATIENT
  Age: 73 Year
  Sex: Female

DRUGS (7)
  1. CHANTIX [Suspect]
     Indication: SMOKING CESSATION THERAPY
  2. LIPITOR [Concomitant]
  3. TENORMIN [Concomitant]
  4. PLAVIX [Concomitant]
  5. ATACAND [Concomitant]
  6. PANTOPRAZOLE SODIUM [Concomitant]
  7. PREMARIN [Concomitant]

REACTIONS (3)
  - MONOPARESIS [None]
  - TREMOR [None]
  - VOMITING [None]
